FAERS Safety Report 16534631 (Version 1)
Quarter: 2019Q3

REPORT INFORMATION
  Report Type: Spontaneous
  Country: US (occurrence: US)
  Receive Date: 20190705
  Receipt Date: 20190705
  Transmission Date: 20191004
  Serious: Yes (Other)
  Sender: FDA-Public Use
  Company Number: US-SUNOVION-2019SUN002736

PATIENT
  Sex: Female
  Weight: 65.76 kg

DRUGS (1)
  1. APTIOM [Suspect]
     Active Substance: ESLICARBAZEPINE ACETATE
     Indication: SEIZURE
     Dosage: 800 MG
     Route: 048

REACTIONS (2)
  - Seizure [Not Recovered/Not Resolved]
  - Product dose omission [Unknown]
